FAERS Safety Report 7012910-X (Version None)
Quarter: 2010Q3

REPORT INFORMATION
  Report Type: 
  Country: None (occurrence: None)
  Receive Date: 20100922
  Receipt Date: 20100908
  Transmission Date: 20110219
  Serious: Yes (Life-Threatening, Hospitalization)
  Sender: FDA-Public Use
  Company Number: 2010SP048025

PATIENT
  Sex: Male

DRUGS (1)
  1. CLARITIN [Suspect]
     Indication: RHINITIS
     Dosage: 10 MG; PO
     Route: 048

REACTIONS (2)
  - COMA [None]
  - FOREIGN TRAVEL [None]
